FAERS Safety Report 8624600-8 (Version None)
Quarter: 2012Q3

REPORT INFORMATION
  Report Type: 
  Country: None (occurrence: None)
  Receive Date: 20120827
  Receipt Date: 20120816
  Transmission Date: 20120928
  Serious: Yes (Other)
  Sender: FDA-Public Use
  Company Number: ZA-ASTRAZENECA-2012SE58158

PATIENT
  Age: 10 Year
  Sex: Female
  Weight: 40 kg

DRUGS (2)
  1. MEROPENEM [Suspect]
     Indication: SEPSIS
     Dosage: EVERY 12 HOURS
     Route: 042
     Dates: start: 20120806, end: 20120808
  2. IV ARTESUNATE [Concomitant]
     Indication: MALARIA
     Route: 042

REACTIONS (4)
  - BLOOD ALBUMIN INCREASED [None]
  - PROTEIN TOTAL INCREASED [None]
  - JAUNDICE HEPATOCELLULAR [None]
  - RENAL FAILURE ACUTE [None]
